FAERS Safety Report 4726526-9 (Version None)
Quarter: 2005Q3

REPORT INFORMATION
  Report Type: 
  Country: None (occurrence: None)
  Receive Date: 20050726
  Receipt Date: 20050713
  Transmission Date: 20060218
  Serious: Yes (Other)
  Sender: FDA-Public Use
  Company Number: 2005066677

PATIENT
  Age: 36 Year
  Sex: Female

DRUGS (2)
  1. BEXTRA [Suspect]
     Indication: ANALGESIC EFFECT
     Dates: start: 20040401, end: 20041001
  2. GABAPENTIN [Concomitant]

REACTIONS (4)
  - LUNG DISORDER [None]
  - MOVEMENT DISORDER [None]
  - NEOPLASM MALIGNANT [None]
  - TUBERCULOSIS [None]
